FAERS Safety Report 12133497 (Version 3)
Quarter: 2016Q2

REPORT INFORMATION
  Report Type: Other
  Country: US (occurrence: US)
  Receive Date: 20160301
  Receipt Date: 20160520
  Transmission Date: 20160815
  Serious: Yes (Other)
  Sender: FDA-Public Use
  Company Number: US-SHIRE-US201602173

PATIENT
  Age: 16 Year
  Sex: Female

DRUGS (2)
  1. CINRYZE [Suspect]
     Active Substance: HUMAN C1-ESTERASE INHIBITOR
     Indication: PROPHYLAXIS
  2. CINRYZE [Suspect]
     Active Substance: HUMAN C1-ESTERASE INHIBITOR
     Indication: HEREDITARY ANGIOEDEMA
     Dosage: 1000 UNITS, OTHER(EVERY 3 TO 4 DAYS)
     Route: 042
     Dates: start: 201601

REACTIONS (4)
  - Pharyngeal oedema [Recovered/Resolved]
  - Social problem [Unknown]
  - Hereditary angioedema [Unknown]
  - Anxiety [Unknown]

NARRATIVE: CASE EVENT DATE: 20160211
